FAERS Safety Report 22651320 (Version 2)
Quarter: 2023Q4

REPORT INFORMATION
  Report Type: Spontaneous
  Country: IN (occurrence: IN)
  Receive Date: 20230628
  Receipt Date: 20231019
  Transmission Date: 20240110
  Serious: Yes (Hospitalization)
  Sender: FDA-Public Use
  Company Number: IN-PFIZER INC-PV202300111934

PATIENT
  Age: 43 Year
  Sex: Female

DRUGS (3)
  1. CRIZOTINIB [Suspect]
     Active Substance: CRIZOTINIB
     Indication: Lung adenocarcinoma
     Dosage: 250 MG
     Route: 048
     Dates: start: 202302, end: 202303
  2. CRIZOTINIB [Suspect]
     Active Substance: CRIZOTINIB
     Dosage: ON ALTERNATIVE DAYS
     Route: 048
  3. CRIZOTINIB [Suspect]
     Active Substance: CRIZOTINIB
     Dosage: 250 MG
     Route: 048
     Dates: start: 202306, end: 202307

REACTIONS (5)
  - Vomiting [Unknown]
  - Laboratory test abnormal [Unknown]
  - Hyponatraemia [Unknown]
  - Disorientation [Unknown]
  - Product prescribing error [Unknown]

NARRATIVE: CASE EVENT DATE: 20230101
